FAERS Safety Report 9852274 (Version 1)
Quarter: 2014Q1

REPORT INFORMATION
  Report Type: Spontaneous
  Country: US (occurrence: None)
  Receive Date: 20140127
  Receipt Date: 20140127
  Transmission Date: 20141002
  Serious: Yes (Other)
  Sender: FDA-Public Use
  Company Number: 2014-US-000490

PATIENT
  Age: 52 Year
  Sex: Male
  Weight: 72.6 kg

DRUGS (1)
  1. XYREM (SODIUM OXYBATE) ORAL SOLUTION, 500 MG/ML [Suspect]
     Indication: NARCOLEPSY
     Route: 048
     Dates: start: 200307

REACTIONS (4)
  - Coronary arterial stent insertion [None]
  - Depression [None]
  - Anxiety [None]
  - Somnambulism [None]
